FAERS Safety Report 8723523 (Version 6)
Quarter: 2014Q2

REPORT INFORMATION
  Report Type: Spontaneous
  Country: US (occurrence: US)
  Receive Date: 20120814
  Receipt Date: 20140521
  Transmission Date: 20141212
  Serious: Yes (Hospitalization, Other)
  Sender: FDA-Public Use
  Company Number: US-009507513-1208USA000752

PATIENT
  Sex: Female
  Weight: 75.74 kg

DRUGS (6)
  1. FOSAMAX [Suspect]
     Indication: OSTEOPOROSIS
     Dosage: 70 MG, QW
     Route: 048
     Dates: start: 20020917, end: 200712
  2. FOSAMAX [Suspect]
     Indication: OSTEOPENIA
  3. SYNTHROID [Concomitant]
     Indication: HYPOTHYROIDISM
  4. ZIAC [Concomitant]
  5. ACTONEL [Suspect]
     Indication: OSTEOPOROSIS
     Dosage: UNK
     Dates: start: 20021023
  6. ACTONEL [Suspect]
     Indication: OSTEOPENIA

REACTIONS (9)
  - Femur fracture [Unknown]
  - Intramedullary rod insertion [Unknown]
  - Cerebrovascular accident [Unknown]
  - Compression fracture [Unknown]
  - Spinal compression fracture [Unknown]
  - Intervertebral disc degeneration [Unknown]
  - Confusional state [Unknown]
  - Hand fracture [Unknown]
  - Dementia Alzheimer^s type [Unknown]
